FAERS Safety Report 13156398 (Version 3)
Quarter: 2018Q1

REPORT INFORMATION
  Report Type: Spontaneous
  Country: GB (occurrence: GB)
  Receive Date: 20170126
  Receipt Date: 20180115
  Transmission Date: 20180508
  Serious: Yes (Other)
  Sender: FDA-Public Use
  Company Number: GB-BAUSCH-BL-2017-001818

PATIENT
  Age: 15 Year
  Sex: Male

DRUGS (12)
  1. CEFUROXIME. [Concomitant]
     Active Substance: CEFUROXIME
     Indication: CORNEAL DEFECT
     Dosage: 1EVERY HOUR
     Dates: start: 201502
  2. RALTEGRAVIR. [Concomitant]
     Active Substance: RALTEGRAVIR
     Indication: HIV INFECTION
     Dates: end: 2014
  3. LOPINAVIR [Concomitant]
     Active Substance: LOPINAVIR
     Indication: HIV INFECTION
     Dates: end: 2014
  4. DARUNAVIR [Concomitant]
     Active Substance: DARUNAVIR
     Indication: HIV INFECTION
     Dates: start: 2014
  5. DEXAMETHASONE. [Suspect]
     Active Substance: DEXAMETHASONE
     Indication: KERATITIS
     Route: 047
     Dates: start: 201502
  6. DEXAMETHASONE. [Interacting]
     Active Substance: DEXAMETHASONE
     Dosage: REDUCED DOSE
     Route: 047
     Dates: start: 2015, end: 2015
  7. DEXAMETHASONE. [Interacting]
     Active Substance: DEXAMETHASONE
     Dosage: 1 HOUR
     Route: 047
     Dates: start: 2015, end: 201509
  8. ZIDOVUDINE. [Concomitant]
     Active Substance: ZIDOVUDINE
     Indication: HIV INFECTION
     Dates: end: 2014
  9. COMBIVIR [Concomitant]
     Active Substance: LAMIVUDINE\ZIDOVUDINE
     Indication: HIV INFECTION
     Dates: start: 2014
  10. DEXAMETHASONE. [Interacting]
     Active Substance: DEXAMETHASONE
     Dosage: EVERY 12 HOUR
     Route: 047
     Dates: start: 2015, end: 2015
  11. GENTAMICIN. [Concomitant]
     Active Substance: GENTAMICIN
     Indication: CORNEAL DEFECT
     Dosage: EVERY 1 HOUR
  12. RITONAVIR. [Suspect]
     Active Substance: RITONAVIR
     Indication: HIV INFECTION
     Route: 065
     Dates: end: 2014

REACTIONS (3)
  - Mood altered [Unknown]
  - Cushing^s syndrome [Recovered/Resolved]
  - Drug interaction [Recovered/Resolved]

NARRATIVE: CASE EVENT DATE: 2015
